FAERS Safety Report 23959083 (Version 1)
Quarter: 2024Q2

REPORT INFORMATION
  Report Type: Spontaneous
  Country: JP (occurrence: JP)
  Receive Date: 20240611
  Receipt Date: 20240611
  Transmission Date: 20240716
  Serious: Yes (Hospitalization, Other)
  Sender: FDA-Public Use
  Company Number: JP-TAIHO-2024-005620

PATIENT
  Age: 66 Year
  Sex: Male
  Weight: 58.4 kg

DRUGS (21)
  1. ABRAXANE [Suspect]
     Active Substance: PACLITAXEL
     Indication: Lung neoplasm malignant
     Route: 041
     Dates: start: 20230607, end: 20230607
  2. ABRAXANE [Suspect]
     Active Substance: PACLITAXEL
     Route: 041
     Dates: start: 20230802, end: 20230802
  3. ABRAXANE [Suspect]
     Active Substance: PACLITAXEL
     Route: 041
     Dates: start: 20230906, end: 20230906
  4. ABRAXANE [Suspect]
     Active Substance: PACLITAXEL
     Route: 041
     Dates: start: 20231004, end: 20231004
  5. FOSNETUPITANT CHLORIDE HYDROCHLORIDE [Suspect]
     Active Substance: FOSNETUPITANT CHLORIDE HYDROCHLORIDE
     Indication: Prophylaxis of nausea and vomiting
     Dosage: THE 1ST DOSE
     Route: 041
     Dates: start: 20230607, end: 20230607
  6. FOSNETUPITANT CHLORIDE HYDROCHLORIDE [Suspect]
     Active Substance: FOSNETUPITANT CHLORIDE HYDROCHLORIDE
     Dosage: THE 2ND DOSE
     Route: 041
     Dates: start: 20230802, end: 20230802
  7. FOSNETUPITANT CHLORIDE HYDROCHLORIDE [Suspect]
     Active Substance: FOSNETUPITANT CHLORIDE HYDROCHLORIDE
     Dosage: THE 3RD DOSE
     Route: 041
     Dates: start: 20230906, end: 20230906
  8. FOSNETUPITANT CHLORIDE HYDROCHLORIDE [Suspect]
     Active Substance: FOSNETUPITANT CHLORIDE HYDROCHLORIDE
     Dosage: THE 4TH DOSE
     Route: 041
     Dates: start: 20231004, end: 20231004
  9. CARBOPLATIN [Suspect]
     Active Substance: CARBOPLATIN
     Indication: Lung neoplasm malignant
     Dates: start: 20230607, end: 20230607
  10. CARBOPLATIN [Suspect]
     Active Substance: CARBOPLATIN
     Dates: start: 20230802, end: 20230802
  11. CARBOPLATIN [Suspect]
     Active Substance: CARBOPLATIN
     Dates: start: 20230906, end: 20230906
  12. CARBOPLATIN [Suspect]
     Active Substance: CARBOPLATIN
     Dates: start: 20231004, end: 20231004
  13. HYDROMORPHONE HYDROCHLORIDE [Suspect]
     Active Substance: HYDROMORPHONE HYDROCHLORIDE
     Indication: Product used for unknown indication
     Dosage: NI
  14. GRANISETRON [Concomitant]
     Active Substance: GRANISETRON
     Indication: Prophylaxis of nausea and vomiting
     Dosage: NI
  15. OLANZAPINE [Concomitant]
     Active Substance: OLANZAPINE
     Indication: Product used for unknown indication
     Dosage: NI
  16. CALCIUM SENNOSIDES [Concomitant]
     Active Substance: SENNOSIDES
     Indication: Constipation
     Dosage: NI
  17. SODIUM PICOSULFATE [Concomitant]
     Active Substance: SODIUM PICOSULFATE
     Indication: Constipation
     Dosage: NI
  18. MEROPENEM [Concomitant]
     Active Substance: MEROPENEM
     Indication: Hepatic infection
     Dosage: NI
  19. MEROPENEM [Concomitant]
     Active Substance: MEROPENEM
     Indication: Sepsis
  20. PIPERACILLIN SODIUM\TAZOBACTAM SODIUM [Concomitant]
     Active Substance: PIPERACILLIN SODIUM\TAZOBACTAM SODIUM
     Indication: Hepatic infection
     Dosage: NI
  21. PIPERACILLIN SODIUM\TAZOBACTAM SODIUM [Concomitant]
     Active Substance: PIPERACILLIN SODIUM\TAZOBACTAM SODIUM
     Indication: Sepsis

REACTIONS (5)
  - Hepatic infection [Recovered/Resolved]
  - Sepsis [Recovered/Resolved]
  - Constipation [Recovering/Resolving]
  - Anaemia [Recovering/Resolving]
  - Hypokalaemia [Recovered/Resolved]

NARRATIVE: CASE EVENT DATE: 20230608
